FAERS Safety Report 23614992 (Version 4)
Quarter: 2025Q4

REPORT INFORMATION
  Report Type: Report from Study
  Country: US (occurrence: US)
  Receive Date: 20240311
  Receipt Date: 20251025
  Transmission Date: 20260117
  Serious: Yes (Other)
  Sender: ABBVIE
  Company Number: US-ABBVIE-5672162

PATIENT
  Age: 64 Year
  Sex: Female
  Weight: 76.657 kg

DRUGS (9)
  1. SKYRIZI [Suspect]
     Active Substance: RISANKIZUMAB-RZAA
     Indication: Psoriatic arthropathy
     Route: 058
     Dates: start: 20240306
  2. SKYRIZI [Suspect]
     Active Substance: RISANKIZUMAB-RZAA
     Indication: Psoriasis
     Route: 058
     Dates: start: 20220817, end: 20240222
  3. ZOLOFT [Concomitant]
     Active Substance: SERTRALINE HYDROCHLORIDE
     Indication: Depression
  4. LIPITOR [Concomitant]
     Active Substance: ATORVASTATIN CALCIUM
     Indication: Blood cholesterol increased
  5. CELEBREX [Concomitant]
     Active Substance: CELECOXIB
     Indication: Inflammation
  6. TYLENOL [Concomitant]
     Active Substance: ACETAMINOPHEN
     Indication: Pain
     Dosage: AS NEEDED
  7. LEFLUNOMIDE [Concomitant]
     Active Substance: LEFLUNOMIDE
     Indication: Inflammation
     Dosage: 20 MILLIGRAM
     Route: 048
  8. VITAMIN D3 [Concomitant]
     Active Substance: CHOLECALCIFEROL
     Indication: Vitamin supplementation
     Dosage: FORM STRENGTH: 2000 MG
     Route: 048
  9. One a day women^s 50+ complete multivitamin [Concomitant]
     Indication: Vitamin supplementation

REACTIONS (7)
  - Osteoarthritis [Recovering/Resolving]
  - Fall [Not Recovered/Not Resolved]
  - Arthritis [Unknown]
  - Psoriatic arthropathy [Recovering/Resolving]
  - Hypoaesthesia [Not Recovered/Not Resolved]
  - Trigger finger [Not Recovered/Not Resolved]
  - Inflammation [Not Recovered/Not Resolved]

NARRATIVE: CASE EVENT DATE: 20230101
